FAERS Safety Report 10237000 (Version 2)
Quarter: 2014Q2

REPORT INFORMATION
  Report Type: Report from Study
  Country: US (occurrence: US)
  Receive Date: 20140613
  Receipt Date: 20140613
  Transmission Date: 20141212
  Serious: Yes (Hospitalization)
  Sender: FDA-Public Use
  Company Number: US-JNJFOC-20140506195

PATIENT
  Age: 86 Year
  Sex: Male
  Weight: 78.5 kg

DRUGS (6)
  1. IMBRUVICA [Suspect]
     Indication: MANTLE CELL LYMPHOMA
     Route: 048
     Dates: start: 20140312
  2. ASPIRIN [Concomitant]
     Route: 048
  3. SIMVASTATIN [Concomitant]
     Route: 048
  4. METOPROLOL [Concomitant]
     Route: 048
  5. FISH OIL [Concomitant]
     Route: 048
  6. MULTIVITAMINS [Concomitant]
     Route: 048

REACTIONS (2)
  - Pleural effusion [Unknown]
  - Pulmonary haemorrhage [Unknown]
